FAERS Safety Report 23621783 (Version 2)
Quarter: 2024Q2

REPORT INFORMATION
  Report Type: Spontaneous
  Country: US (occurrence: None)
  Receive Date: 20240312
  Receipt Date: 20240423
  Transmission Date: 20240716
  Serious: Yes (Other)
  Sender: FDA-Public Use
  Company Number: 2024A053933

PATIENT
  Age: 27804 Day
  Sex: Male

DRUGS (4)
  1. BRILINTA [Suspect]
     Active Substance: TICAGRELOR
     Indication: Cerebrovascular accident
     Route: 048
  2. BRILINTA [Suspect]
     Active Substance: TICAGRELOR
     Indication: Heart valve explantation
     Route: 048
  3. BRILINTA [Suspect]
     Active Substance: TICAGRELOR
     Indication: Cerebrovascular accident
     Route: 048
     Dates: start: 20240111
  4. BRILINTA [Suspect]
     Active Substance: TICAGRELOR
     Indication: Heart valve explantation
     Route: 048
     Dates: start: 20240111

REACTIONS (4)
  - Cardiac valve disease [Unknown]
  - Dyspnoea [Unknown]
  - Herpes zoster [Unknown]
  - Dyspnoea [Unknown]

NARRATIVE: CASE EVENT DATE: 20240111
